FAERS Safety Report 15020163 (Version 2)
Quarter: 2018Q3

REPORT INFORMATION
  Report Type: Spontaneous
  Country: ES (occurrence: ES)
  Receive Date: 20180618
  Receipt Date: 20180726
  Transmission Date: 20181010
  Serious: Yes (Other)
  Sender: FDA-Public Use
  Company Number: ES-TEVA-2018-ES-907802

PATIENT
  Age: 69 Year
  Sex: Female

DRUGS (4)
  1. ODENIL 2,5 MG/G CREMA , 1 TUBO DE 20 G [Concomitant]
     Indication: ONYCHOMYCOSIS
     Route: 061
     Dates: start: 20170629
  2. OMEPRAZOL (2141A) [Suspect]
     Active Substance: OMEPRAZOLE
     Dosage: 20 MILLIGRAM DAILY;
     Route: 048
     Dates: start: 20160801, end: 20180323
  3. PROLIA [Suspect]
     Active Substance: DENOSUMAB
     Indication: OSTEOPOROSIS
     Route: 058
     Dates: start: 20160621, end: 20171221
  4. LAMISIL 250 MG COMPRIMIDOS, 14 COMPRIMIDOS [Concomitant]
     Indication: ONYCHOMYCOSIS
     Dosage: 250 MILLIGRAM DAILY;
     Route: 048
     Dates: start: 20170309, end: 20170629

REACTIONS (1)
  - Musculoskeletal pain [Unknown]

NARRATIVE: CASE EVENT DATE: 20171215
